FAERS Safety Report 7420816-7 (Version None)
Quarter: 2011Q2

REPORT INFORMATION
  Report Type: 
  Country: None (occurrence: None)
  Receive Date: 20110418
  Receipt Date: 20110411
  Transmission Date: 20111010
  Serious: Yes (Other)
  Sender: FDA-Public Use
  Company Number: B0713541A

PATIENT
  Sex: Female

DRUGS (1)
  1. NICABATE MINI LOZENGES 4MG [Suspect]
     Indication: DRUG WITHDRAWAL MAINTENANCE THERAPY
     Route: 002
     Dates: start: 20110401, end: 20110401

REACTIONS (4)
  - CHOKING SENSATION [None]
  - LOSS OF CONSCIOUSNESS [None]
  - PALPITATIONS [None]
  - DYSPNOEA [None]
